FAERS Safety Report 9581480 (Version 1)
Quarter: 2013Q4

REPORT INFORMATION
  Report Type: Report from Study
  Country: US (occurrence: US)
  Receive Date: 20131002
  Receipt Date: 20131002
  Transmission Date: 20140711
  Serious: Yes (Death)
  Sender: FDA-Public Use
  Company Number: PHEH2013US020354

PATIENT
  Age: 60 Year
  Sex: Female

DRUGS (14)
  1. GILENYA [Suspect]
     Indication: MULTIPLE SCLEROSIS
     Dosage: 0.5 MG, QD
     Route: 048
     Dates: start: 20120511, end: 20130922
  2. TRICOR [Concomitant]
     Dosage: 145 MG, UNK
  3. LIPITOR [Concomitant]
     Dosage: 20 MG, DAILY
  4. PLAVIX [Concomitant]
     Dosage: 75 MG, DAILY
  5. TIZANIDINE [Concomitant]
     Dosage: 4 MG, DAILY
  6. RANITIDINE [Concomitant]
     Dosage: 150 MG, UNK
  7. AMITRIPTYLIN [Concomitant]
     Dosage: 25 MG, UNK
  8. AMBIEN [Concomitant]
     Dosage: 10 MG, AT BED TIME
  9. CYMBALTA [Concomitant]
     Dosage: 60 MG, UNK
  10. NEXUM [Concomitant]
     Dosage: 40 MG, UNK
  11. SENSIPAR [Concomitant]
     Dosage: 30 MG, UNK
  12. RENVELA [Concomitant]
     Dosage: 800 MG, UNK
  13. NARATRIPTAN [Concomitant]
     Dosage: 25 MG, UNK
  14. METOPROLOL [Concomitant]
     Dosage: 25 MG, UNK

REACTIONS (1)
  - Death [Fatal]
